FAERS Safety Report 13251893 (Version 1)
Quarter: 2017Q1

REPORT INFORMATION
  Report Type: Spontaneous
  Country: JP (occurrence: JP)
  Receive Date: 20170220
  Receipt Date: 20170220
  Transmission Date: 20170428
  Serious: Yes (Hospitalization)
  Sender: FDA-Public Use
  Company Number: JP-ELI_LILLY_AND_COMPANY-JP201608005038

PATIENT
  Age: 47 Year
  Sex: Male

DRUGS (2)
  1. ZYPREXA [Suspect]
     Active Substance: OLANZAPINE
     Dosage: 100 MG, OTHER
     Route: 048
  2. ZYPREXA [Suspect]
     Active Substance: OLANZAPINE
     Indication: SCHIZOPHRENIA
     Route: 048

REACTIONS (11)
  - Tachycardia [Unknown]
  - Hyperhidrosis [Unknown]
  - Blood pressure fluctuation [Unknown]
  - Miosis [Unknown]
  - Hyperreflexia [Recovering/Resolving]
  - Altered state of consciousness [Recovering/Resolving]
  - Muscle rigidity [Recovering/Resolving]
  - White blood cell count increased [Unknown]
  - Flushing [Unknown]
  - Overdose [Recovered/Resolved]
  - Sinus tachycardia [Unknown]
